FAERS Safety Report 15424906 (Version 1)
Quarter: 2018Q3

REPORT INFORMATION
  Report Type: Spontaneous
  Country: GB (occurrence: GB)
  Receive Date: 20180925
  Receipt Date: 20180925
  Transmission Date: 20181010
  Serious: Yes (Other)
  Sender: FDA-Public Use
  Company Number: GB-IMPAX LABORATORIES, INC-2018-IPXL-03090

PATIENT
  Age: 71 Year
  Sex: Male

DRUGS (4)
  1. GELOFUSIN [Concomitant]
     Active Substance: GELATIN\POTASSIUM CHLORIDE\SODIUM CHLORIDE
     Indication: RECTOSIGMOID CANCER
     Dosage: UNK
     Route: 065
  2. ADRENACLICK [Suspect]
     Active Substance: EPINEPHRINE
     Indication: PRODUCT USE IN UNAPPROVED INDICATION
  3. ADRENACLICK [Suspect]
     Active Substance: EPINEPHRINE
     Indication: RECTOSIGMOID CANCER
     Dosage: 1:100,000, UNK
     Route: 065
  4. METHYLENE BLUE. [Concomitant]
     Active Substance: METHYLENE BLUE
     Indication: RECTOSIGMOID CANCER
     Dosage: 0.5%, UNK
     Route: 065

REACTIONS (2)
  - Product use in unapproved indication [Unknown]
  - Acute coronary syndrome [Unknown]
